FAERS Safety Report 24280804 (Version 1)
Quarter: 2024Q3

REPORT INFORMATION
  Report Type: Report from Study
  Country: US (occurrence: US)
  Receive Date: 20240904
  Receipt Date: 20240904
  Transmission Date: 20241016
  Serious: Yes (Hospitalization, Other)
  Sender: RANBAXY
  Company Number: US-SUN PHARMACEUTICAL INDUSTRIES LTD-2020R1-247074

PATIENT
  Age: 57 Year
  Sex: Male

DRUGS (2)
  1. BOSENTAN [Suspect]
     Active Substance: BOSENTAN
     Indication: Pulmonary arterial hypertension
     Dosage: 125 MILLIGRAM, BID
     Route: 048
     Dates: start: 20190112
  2. BOSENTAN [Suspect]
     Active Substance: BOSENTAN
     Dosage: 125 MILLIGRAM, BID
     Route: 048
     Dates: start: 201906

REACTIONS (4)
  - Enteritis infectious [Recovered/Resolved]
  - Product dose omission issue [Unknown]
  - Liver disorder [Unknown]
  - Headache [Unknown]

NARRATIVE: CASE EVENT DATE: 20200507
